FAERS Safety Report 6356586-3 (Version None)
Quarter: 2009Q3

REPORT INFORMATION
  Report Type: 
  Country: None (occurrence: None)
  Receive Date: 20090910
  Receipt Date: 20090910
  Transmission Date: 20100115
  Serious: Yes (Other)
  Sender: FDA-Public Use
  Company Number: None

PATIENT
  Age: 56 Year
  Sex: Female
  Weight: 57.6068 kg

DRUGS (1)
  1. MIDAZOLAM HCL [Suspect]
     Dosage: 5 MG IV
     Route: 042
     Dates: start: 20080429, end: 20080429

REACTIONS (9)
  - ANXIETY [None]
  - DEPRESSION [None]
  - DIZZINESS [None]
  - HOSTILITY [None]
  - INSOMNIA [None]
  - MENTAL DISORDER [None]
  - NAUSEA [None]
  - SPEECH DISORDER [None]
  - SUICIDAL IDEATION [None]
